FAERS Safety Report 7118119-3 (Version None)
Quarter: 2010Q4

REPORT INFORMATION
  Report Type: 
  Country: None (occurrence: None)
  Receive Date: 20101123
  Receipt Date: 20101111
  Transmission Date: 20110411
  Serious: Yes (Other)
  Sender: FDA-Public Use
  Company Number: US-PFIZER INC-2010123819

PATIENT
  Sex: Male
  Weight: 133.79 kg

DRUGS (4)
  1. LYRICA [Suspect]
     Indication: NEURALGIA
     Dosage: 200 MG, 3X/DAY
     Route: 048
     Dates: start: 20070101
  2. ACYCLOVIR [Concomitant]
     Dosage: 800 MG, DAILY
  3. METOPROLOL [Concomitant]
     Dosage: 25 MG, 2X/DAY
  4. ACTONEL [Concomitant]
     Dosage: 150 MG, UNK

REACTIONS (4)
  - DRUG INEFFECTIVE [None]
  - PAIN IN EXTREMITY [None]
  - PLATELET COUNT DECREASED [None]
  - WHITE BLOOD CELL COUNT DECREASED [None]
